FAERS Safety Report 4462280-6 (Version None)
Quarter: 2004Q3

REPORT INFORMATION
  Report Type: 
  Country: None (occurrence: None)
  Receive Date: 20040929
  Receipt Date: 20040921
  Transmission Date: 20050211
  Serious: Yes (Other)
  Sender: FDA-Public Use
  Company Number: 2004JP001710

PATIENT
  Age: 60 Year
  Sex: Female
  Weight: 34 kg

DRUGS (2)
  1. CEFAZOLIN [Suspect]
     Dosage: 2G PER DAY
     Route: 065
     Dates: start: 20040810
  2. TARGOCID [Suspect]
     Route: 065
     Dates: start: 20040827

REACTIONS (2)
  - NEUTROPHIL COUNT DECREASED [None]
  - STAPHYLOCOCCAL INFECTION [None]
